FAERS Safety Report 7936114-9 (Version None)
Quarter: 2011Q4

REPORT INFORMATION
  Report Type: 
  Country: None (occurrence: None)
  Receive Date: 20111123
  Receipt Date: 20111114
  Transmission Date: 20120403
  Serious: No
  Sender: FDA-Public Use
  Company Number: US-JNJFOC-20111011381

PATIENT
  Sex: Female

DRUGS (3)
  1. LITHIUM CARBONATE [Concomitant]
     Indication: DRUG THERAPY
     Route: 048
  2. INVEGA SUSTENNA [Suspect]
     Indication: PSYCHOTIC DISORDER
     Route: 030
     Dates: start: 20110111
  3. ZYPREXA [Concomitant]
     Indication: PSYCHOTIC DISORDER
     Route: 048

REACTIONS (3)
  - MUSCULOSKELETAL STIFFNESS [None]
  - EXTRAPYRAMIDAL DISORDER [None]
  - TREMOR [None]
